FAERS Safety Report 13602044 (Version 1)
Quarter: 2017Q2

REPORT INFORMATION
  Report Type: Spontaneous
  Country: AU (occurrence: AU)
  Receive Date: 20170601
  Receipt Date: 20170601
  Transmission Date: 20170830
  Serious: Yes (Hospitalization)
  Sender: FDA-Public Use
  Company Number: AU-LANNETT COMPANY, INC.-AU-2017LAN000805

PATIENT
  Age: 78 Year
  Sex: Female

DRUGS (8)
  1. BUPRENORPHINE. [Suspect]
     Active Substance: BUPRENORPHINE
     Dosage: 1 MG, (5 X 200 ?G) OVER 10 HOURS
     Route: 060
  2. BUPRENORPHINE. [Suspect]
     Active Substance: BUPRENORPHINE
     Dosage: 5 ?G/HOUR
     Route: 062
  3. OXYCODONE HYDROCHLORIDE. [Suspect]
     Active Substance: OXYCODONE HYDROCHLORIDE
     Indication: PAIN
     Dosage: 12.5 MG, UNK
     Route: 065
  4. ROPIVACAINE [Concomitant]
     Active Substance: ROPIVACAINE
     Dosage: 6 ML/HOUR (0.2%)
     Route: 037
  5. ROPIVACAINE [Concomitant]
     Active Substance: ROPIVACAINE
     Indication: PRODUCT USED FOR UNKNOWN INDICATION
     Dosage: 20 ML OF 0.375%, UNK
     Route: 037
  6. BUPRENORPHINE. [Suspect]
     Active Substance: BUPRENORPHINE
     Indication: PRODUCT USED FOR UNKNOWN INDICATION
     Dosage: 300 ?G, UNK
  7. PROPOFOL. [Concomitant]
     Active Substance: PROPOFOL
     Indication: SEDATION
     Dosage: UNK
  8. CLONIDINE. [Concomitant]
     Active Substance: CLONIDINE
     Indication: PRODUCT USED FOR UNKNOWN INDICATION
     Dosage: 150 ?G, UNK

REACTIONS (3)
  - Hyponatraemia [Recovered/Resolved]
  - Neurological decompensation [Recovered/Resolved]
  - Respiratory depression [Recovered/Resolved]
